FAERS Safety Report 25437579 (Version 3)
Quarter: 2025Q3

REPORT INFORMATION
  Report Type: Spontaneous
  Country: JP (occurrence: JP)
  Receive Date: 20250616
  Receipt Date: 20250717
  Transmission Date: 20251021
  Serious: Yes (Death, Hospitalization, Other)
  Sender: NOVO NORDISK
  Company Number: JP-NOVOPROD-1452862

PATIENT
  Age: 64 Year
  Sex: Male
  Weight: 56.9 kg

DRUGS (10)
  1. INSULIN ICODEC [Suspect]
     Active Substance: INSULIN ICODEC
     Indication: Type 2 diabetes mellitus
     Dosage: 100 IU, QW
     Route: 058
     Dates: start: 20250419
  2. INSULIN ICODEC [Suspect]
     Active Substance: INSULIN ICODEC
     Dosage: 110 IU, QW
     Route: 058
     Dates: start: 20250426, end: 20250524
  3. OZEMPIC [Suspect]
     Active Substance: SEMAGLUTIDE
     Indication: Type 2 diabetes mellitus
     Dosage: 0.25 MG, QW
     Route: 058
  4. OZEMPIC [Suspect]
     Active Substance: SEMAGLUTIDE
     Dosage: 0.5 MG, QW
     Route: 058
  5. RABEPRAZOLE SODIUM [Concomitant]
     Active Substance: RABEPRAZOLE SODIUM
  6. TRAZODONE HYDROCHLORIDE [Concomitant]
     Active Substance: TRAZODONE HYDROCHLORIDE
  7. CALONAL [Concomitant]
     Active Substance: ACETAMINOPHEN
  8. FUROSEMIDE [Concomitant]
     Active Substance: FUROSEMIDE
  9. SPIRONOLACTONE [Concomitant]
     Active Substance: SPIRONOLACTONE
  10. AMINOLEBAN EN [ALANINE;ARGININE HYDROCHLORIDE;GLYCINE;ISOLEUCINE;METHI [Concomitant]

REACTIONS (7)
  - Extradural abscess [Unknown]
  - Death [Fatal]
  - Liver disorder [Unknown]
  - Hypoglycaemia [Recovered/Resolved]
  - Blood glucose fluctuation [Unknown]
  - Hyperglycaemia [Unknown]
  - Decreased appetite [Unknown]

NARRATIVE: CASE EVENT DATE: 20250426
